FAERS Safety Report 23325197 (Version 1)
Quarter: 2023Q4

REPORT INFORMATION
  Report Type: Spontaneous
  Country: CN (occurrence: CN)
  Receive Date: 20231221
  Receipt Date: 20231221
  Transmission Date: 20240110
  Serious: Yes (Hospitalization, Other)
  Sender: FDA-Public Use
  Company Number: CN-SCIEGENP-2023SCLIT00780

PATIENT
  Sex: Male

DRUGS (16)
  1. HYDROCHLOROTHIAZIDE [Suspect]
     Active Substance: HYDROCHLOROTHIAZIDE
     Indication: Product used for unknown indication
     Route: 065
  2. DEXAMETHASONE [Suspect]
     Active Substance: DEXAMETHASONE
     Indication: Product used for unknown indication
     Route: 065
  3. SPIRONOLACTONE [Suspect]
     Active Substance: SPIRONOLACTONE
     Indication: Product used for unknown indication
     Route: 065
  4. Gursul [Concomitant]
     Route: 065
  5. Gursul [Concomitant]
     Indication: Antibiotic therapy
  6. CEFOPERAZONE [Concomitant]
     Active Substance: CEFOPERAZONE
     Indication: Antibiotic therapy
     Route: 065
  7. SULBACTAM SODIUM [Concomitant]
     Active Substance: SULBACTAM SODIUM
     Indication: Antibiotic therapy
     Route: 065
  8. FLUCLOXACILLIN [Concomitant]
     Active Substance: FLUCLOXACILLIN
     Indication: Antibiotic therapy
     Route: 065
  9. MEROPENEM [Concomitant]
     Active Substance: MEROPENEM
     Indication: Antibiotic therapy
     Route: 065
  10. Piperacillin tazobactam sodium [Concomitant]
     Indication: Antibiotic therapy
     Route: 065
  11. ERYTHROMYCIN [Concomitant]
     Active Substance: ERYTHROMYCIN
     Indication: Antibiotic therapy
     Route: 065
  12. FLUCONAZOLE [Concomitant]
     Active Substance: FLUCONAZOLE
     Indication: Antibiotic therapy
     Route: 065
  13. OMEPRAZOLE [Concomitant]
     Active Substance: OMEPRAZOLE
     Indication: Anaemia
     Route: 065
  14. ETHAMSYLATE [Concomitant]
     Active Substance: ETHAMSYLATE
     Indication: Anaemia
     Route: 065
  15. CAFFEINE [Concomitant]
     Active Substance: CAFFEINE
     Indication: Apnoea
     Route: 042
  16. LEVOTHYROXINE [Concomitant]
     Active Substance: LEVOTHYROXINE
     Indication: Congenital hypothyroidism
     Route: 048

REACTIONS (1)
  - Hypertension neonatal [Recovering/Resolving]
